FAERS Safety Report 23083056 (Version 2)
Quarter: 2023Q4

REPORT INFORMATION
  Report Type: Spontaneous
  Country: US (occurrence: US)
  Receive Date: 20231019
  Receipt Date: 20231115
  Transmission Date: 20240109
  Serious: No
  Sender: FDA-Public Use
  Company Number: US-BAYER-2023A138968

PATIENT
  Age: 36 Year
  Sex: Male

DRUGS (1)
  1. JIVI [Suspect]
     Active Substance: DAMOCTOCOG ALFA PEGOL
     Indication: Prophylaxis
     Dosage: 3500 UNITS (+/- 10%)

REACTIONS (4)
  - Pain [None]
  - Musculoskeletal stiffness [None]
  - Joint stiffness [None]
  - Product use in unapproved indication [None]

NARRATIVE: CASE EVENT DATE: 20230927
